FAERS Safety Report 4677907-3 (Version None)
Quarter: 2005Q2

REPORT INFORMATION
  Report Type: 
  Country: None (occurrence: None)
  Receive Date: 20050531
  Receipt Date: 20050519
  Transmission Date: 20051028
  Serious: Yes (Death)
  Sender: FDA-Public Use
  Company Number: GB-GLAXOSMITHKLINE-B0382699A

PATIENT
  Age: 71 Year
  Sex: Male

DRUGS (8)
  1. BECLOMETHASONE DIPROPIONATE [Suspect]
     Dosage: 200MCG AS REQUIRED
     Route: 065
  2. SALBUTAMOL [Suspect]
     Dosage: 100MCG AS REQUIRED
     Route: 055
  3. SERETIDE [Suspect]
     Dosage: 2PUFF TWICE PER DAY
     Route: 055
  4. SALMETEROL XINAFOATE [Suspect]
     Route: 055
  5. OXYGEN [Suspect]
     Route: 065
  6. QUININE BISULPHATE [Suspect]
     Dosage: 300MG AS REQUIRED
     Route: 065
  7. SPIRIVA [Suspect]
     Route: 055
  8. MONTELUKAST SODIUM [Suspect]
     Dosage: 10MG AT NIGHT
     Route: 065

REACTIONS (2)
  - CHRONIC OBSTRUCTIVE PULMONARY DISEASE [None]
  - DIARRHOEA [None]
